FAERS Safety Report 5833747-0 (Version None)
Quarter: 2008Q3

REPORT INFORMATION
  Report Type: 
  Country: None (occurrence: None)
  Receive Date: 20080801
  Receipt Date: 20080724
  Transmission Date: 20090109
  Serious: Yes (Hospitalization)
  Sender: FDA-Public Use
  Company Number: CERZ-1000308

PATIENT
  Age: 2 Year
  Sex: Male
  Weight: 9.1 kg

DRUGS (3)
  1. CEREZYME [Suspect]
     Indication: GAUCHER'S DISEASE
     Dosage: 1200 U, Q2W, INTRAVENOUS
     Route: 042
     Dates: start: 20060301
  2. BENADRYL [Concomitant]
  3. EMLA (LIDOCAINE) [Concomitant]

REACTIONS (7)
  - CHILLS [None]
  - EPIGLOTTITIS [None]
  - LARYNGOSPASM [None]
  - NEUROLOGICAL SYMPTOM [None]
  - PYREXIA [None]
  - RESPIRATORY ARREST [None]
  - WEIGHT DECREASED [None]
